FAERS Safety Report 8621680-0 (Version None)
Quarter: 2012Q3

REPORT INFORMATION
  Report Type: 
  Country: None (occurrence: None)
  Receive Date: 20120825
  Receipt Date: 20120803
  Transmission Date: 20120928
  Serious: No
  Sender: FDA-Public Use
  Company Number: US-009507513-1208USA002387

PATIENT

DRUGS (3)
  1. REBETOL [Suspect]
     Route: 048
  2. TELAPREVIR [Concomitant]
     Dosage: INCIVEK
     Route: 048
  3. PEG-INTRON [Suspect]
     Dosage: INJECT 0.4 ML, QW
     Route: 058

REACTIONS (2)
  - COUGH [None]
  - RESPIRATORY TRACT CONGESTION [None]
